FAERS Safety Report 5570248-1 (Version None)
Quarter: 2007Q4

REPORT INFORMATION
  Report Type: 
  Country: None (occurrence: None)
  Receive Date: 20071220
  Receipt Date: 20071211
  Transmission Date: 20080405
  Serious: Yes (Other)
  Sender: FDA-Public Use
  Company Number: BR-PFIZER INC-2007104599

PATIENT
  Sex: Female

DRUGS (6)
  1. FRONTAL XR [Suspect]
  2. ROHYPNOL [Concomitant]
  3. SIMVASTATIN [Concomitant]
  4. FLUOXETINE [Concomitant]
  5. CARDIOVASCULAR SYSTEM DRUGS [Concomitant]
  6. CARDIAC THERAPY [Concomitant]

REACTIONS (7)
  - CARPAL TUNNEL SYNDROME [None]
  - FEAR OF DEATH [None]
  - HALLUCINATION [None]
  - NIGHTMARE [None]
  - PANIC REACTION [None]
  - TACHYCARDIA [None]
  - VOMITING [None]
